FAERS Safety Report 4942522-0 (Version None)
Quarter: 2006Q1

REPORT INFORMATION
  Report Type: 
  Country: None (occurrence: None)
  Receive Date: 20060313
  Receipt Date: 20050401
  Transmission Date: 20060701
  Serious: No
  Sender: FDA-Public Use
  Company Number: US-GLAXOSMITHKLINE-A0552350A

PATIENT
  Age: 60 Year
  Sex: Male

DRUGS (3)
  1. COMMIT [Suspect]
     Dosage: 4MG CYCLIC
     Route: 048
     Dates: start: 20040401, end: 20040401
  2. LIPITOR [Concomitant]
  3. ACCURETIC [Concomitant]

REACTIONS (1)
  - HICCUPS [None]
